FAERS Safety Report 4388925-7 (Version None)
Quarter: 2004Q2

REPORT INFORMATION
  Report Type: 
  Country: None (occurrence: None)
  Receive Date: 20040628
  Receipt Date: 20040616
  Transmission Date: 20050107
  Serious: Yes (Other)
  Sender: FDA-Public Use
  Company Number: 2004021278

PATIENT
  Age: 40 Year
  Sex: Male

DRUGS (4)
  1. GEODON [Suspect]
     Indication: DEPRESSION
     Dosage: 160 MG (1 IN 1 D), ORAL
     Route: 048
     Dates: end: 20040317
  2. SERTRALINE HCL [Concomitant]
  3. ZOLPIDEM TARTRATE [Concomitant]
  4. CYCLOBENZAPRINE HYDROCHLORIDE [Concomitant]

REACTIONS (9)
  - CONFUSIONAL STATE [None]
  - DISTURBANCE IN ATTENTION [None]
  - NEPHROCALCINOSIS [None]
  - NEPHROLITHIASIS [None]
  - SEDATION [None]
  - SOMNOLENCE [None]
  - SUDDEN ONSET OF SLEEP [None]
  - TREATMENT NONCOMPLIANCE [None]
  - VISION BLURRED [None]
